FAERS Safety Report 26128021 (Version 1)
Quarter: 2025Q4

REPORT INFORMATION
  Report Type: Spontaneous
  Country: EU (occurrence: EU)
  Receive Date: 20251206
  Receipt Date: 20251206
  Transmission Date: 20260117
  Serious: Yes (Other)
  Sender: CELLTRION
  Company Number: EU-ROCHE-10000440533

PATIENT

DRUGS (4)
  1. BEVACIZUMAB [Suspect]
     Active Substance: BEVACIZUMAB
     Indication: Product used for unknown indication
     Dosage: 1ST CYCLE
     Route: 065
     Dates: start: 20240903
  2. BEVACIZUMAB [Suspect]
     Active Substance: BEVACIZUMAB
     Dosage: 6TH CYCLE
     Route: 065
     Dates: start: 20250605
  3. ATEZOLIZUMAB [Suspect]
     Active Substance: ATEZOLIZUMAB
     Indication: Product used for unknown indication
     Route: 065
     Dates: start: 20240903
  4. ATEZOLIZUMAB [Suspect]
     Active Substance: ATEZOLIZUMAB
     Dosage: 6TH CYCLE
     Route: 065
     Dates: start: 20250605

REACTIONS (3)
  - Diabetic ketoacidosis [Unknown]
  - Hypothyroidism [Unknown]
  - Diarrhoea [Unknown]
